FAERS Safety Report 15164071 (Version 4)
Quarter: 2019Q3

REPORT INFORMATION
  Report Type: Spontaneous
  Country: US (occurrence: US)
  Receive Date: 20180719
  Receipt Date: 20190816
  Transmission Date: 20191004
  Serious: Yes (Hospitalization, Other)
  Sender: FDA-Public Use
  Company Number: US-ROCHE-2156751

PATIENT
  Age: 32 Year
  Sex: Female
  Weight: 40.7 kg

DRUGS (23)
  1. SYMDEKO [Concomitant]
     Active Substance: IVACAFTOR\TEZACAFTOR
     Route: 065
  2. URSODIOL. [Concomitant]
     Active Substance: URSODIOL
     Route: 048
  3. METOPROLOL TARTRATE. [Concomitant]
     Active Substance: METOPROLOL TARTRATE
     Route: 048
  4. SODIUM CHLORIDE. [Concomitant]
     Active Substance: SODIUM CHLORIDE
  5. FLUTICASONE;SALMETEROL [Concomitant]
     Active Substance: FLUTICASONE PROPIONATE\SALMETEROL XINAFOATE
  6. FLUTICASONE. [Concomitant]
     Active Substance: FLUTICASONE
  7. MARINOL [Concomitant]
     Active Substance: DRONABINOL
     Route: 048
  8. AMYLASE/LIPASE/PROTEASE [Concomitant]
     Active Substance: AMYLASE\LIPASE\PROTEASE
  9. LISINOPRIL. [Concomitant]
     Active Substance: LISINOPRIL
     Route: 048
  10. GABAPENTIN. [Concomitant]
     Active Substance: GABAPENTIN
     Dosage: AT BEDTIME
     Route: 048
  11. ALBUTEROL [SALBUTAMOL] [Concomitant]
     Active Substance: ALBUTEROL
     Route: 065
  12. IBUPROFEN. [Concomitant]
     Active Substance: IBUPROFEN
     Route: 065
  13. PULMOZYME [Suspect]
     Active Substance: DORNASE ALFA
     Route: 065
  14. CHOLECALCIFEROL [Concomitant]
     Active Substance: CHOLECALCIFEROL
     Dosage: 10000 UNIT CAP
     Route: 048
  15. OMEPRAZOLE. [Concomitant]
     Active Substance: OMEPRAZOLE
     Route: 065
  16. RANITIDINE. [Concomitant]
     Active Substance: RANITIDINE
     Route: 048
  17. PULMOZYME [Suspect]
     Active Substance: DORNASE ALFA
     Indication: PRODUCT USED FOR UNKNOWN INDICATION
     Dosage: 4 WEEKS?1 MG/ML AMPOULE
     Route: 055
  18. MIRTAZAPINE. [Concomitant]
     Active Substance: MIRTAZAPINE
  19. BETHKIS [Concomitant]
     Active Substance: TOBRAMYCIN
  20. AZITHROMYCIN ANHYDROUS. [Concomitant]
     Active Substance: AZITHROMYCIN ANHYDROUS
     Route: 048
  21. TOBRAMYCIN. [Concomitant]
     Active Substance: TOBRAMYCIN
     Route: 042
  22. BASAGLAR [Concomitant]
     Active Substance: INSULIN GLARGINE
     Route: 058
  23. APIXABAN [Concomitant]
     Active Substance: APIXABAN
     Route: 048

REACTIONS (3)
  - Bacterial infection [Unknown]
  - Pulmonary mycosis [Unknown]
  - Cystic fibrosis [Unknown]

NARRATIVE: CASE EVENT DATE: 20180619
